FAERS Safety Report 4635496-3 (Version None)
Quarter: 2005Q2

REPORT INFORMATION
  Report Type: 
  Country: None (occurrence: None)
  Receive Date: 20050413
  Receipt Date: 20050331
  Transmission Date: 20051028
  Serious: Yes (Other)
  Sender: FDA-Public Use
  Company Number: 2005BI003266

PATIENT
  Age: 45 Year
  Sex: Male

DRUGS (3)
  1. AVONEX [Suspect]
     Indication: MULTIPLE SCLEROSIS
     Dosage: 30 UG;QW;IM
     Route: 030
     Dates: start: 20041023
  2. VITAMINS (NOS) [Concomitant]
  3. MOTRIN [Concomitant]

REACTIONS (4)
  - HYPERHIDROSIS [None]
  - LOSS OF CONSCIOUSNESS [None]
  - PHOBIA [None]
  - STRESS [None]
